FAERS Safety Report 23644278 (Version 1)
Quarter: 2024Q1

REPORT INFORMATION
  Report Type: Spontaneous
  Country: US (occurrence: US)
  Receive Date: 20240318
  Receipt Date: 20240318
  Transmission Date: 20240410
  Serious: No
  Sender: FDA-Public Use
  Company Number: US-SA-SAC20240314000981

PATIENT
  Age: 52 Year
  Sex: Male

DRUGS (4)
  1. DUPIXENT [Suspect]
     Active Substance: DUPILUMAB
     Indication: Dermatitis atopic
     Dosage: 300 MG, QOW
     Route: 058
     Dates: start: 20180404
  2. CLOBETASOL [Concomitant]
     Active Substance: CLOBETASOL
  3. IBUPROFEN [Concomitant]
     Active Substance: IBUPROFEN
  4. MELATONIN [Concomitant]
     Active Substance: MELATONIN

REACTIONS (1)
  - Patellofemoral pain syndrome [Unknown]

NARRATIVE: CASE EVENT DATE: 20231203
